FAERS Safety Report 24352239 (Version 1)
Quarter: 2024Q3

REPORT INFORMATION
  Report Type: Report from Study
  Country: RO (occurrence: RO)
  Receive Date: 20240923
  Receipt Date: 20240923
  Transmission Date: 20241016
  Serious: No
  Sender: ROCHE
  Company Number: RO-ROCHE-3120722

PATIENT
  Age: 43 Year
  Sex: Female
  Weight: 60.0 kg

DRUGS (2)
  1. HERCEPTIN [Suspect]
     Active Substance: TRASTUZUMAB
     Indication: Extramammary Paget^s disease
     Dosage: 600MG/5ML
     Route: 065
  2. PERJETA [Suspect]
     Active Substance: PERTUZUMAB
     Indication: Extramammary Paget^s disease
     Route: 065

REACTIONS (4)
  - Memory impairment [Unknown]
  - Oedema [Unknown]
  - Off label use [Unknown]
  - Drug ineffective [Unknown]
